FAERS Safety Report 26138927 (Version 2)
Quarter: 2025Q4

REPORT INFORMATION
  Report Type: Spontaneous
  Country: JP (occurrence: JP)
  Receive Date: 20251210
  Receipt Date: 20251226
  Transmission Date: 20260117
  Serious: Yes (Hospitalization)
  Sender: MERCK SHARP & DOHME LLC
  Company Number: JP-009507513-2358561

PATIENT
  Age: 60 Year
  Sex: Female
  Weight: 49.6 kg

DRUGS (4)
  1. WELIREG [Suspect]
     Active Substance: BELZUTIFAN
     Indication: Renal cell carcinoma
     Route: 048
     Dates: start: 20251114, end: 20251114
  2. WELIREG [Suspect]
     Active Substance: BELZUTIFAN
     Indication: Renal cell carcinoma
     Route: 048
     Dates: start: 20251010, end: 20251023
  3. WELIREG [Suspect]
     Active Substance: BELZUTIFAN
     Indication: Renal cell carcinoma
     Route: 048
     Dates: start: 20251116
  4. METHYCOBAL Tablets 500  g [Concomitant]
     Dosage: TIME INTERVAL: 0.33333333 DAYS: STRENGTH: 500 UG; 3 TABLETS 3 TIMES AFTER EACH MEAL; CONTINUED
     Route: 048
     Dates: start: 202509

REACTIONS (4)
  - Pyrexia [Recovered/Resolved]
  - Blood pressure decreased [Not Recovered/Not Resolved]
  - Rash papular [Recovering/Resolving]
  - Pyrexia [Recovering/Resolving]

NARRATIVE: CASE EVENT DATE: 20251021
